FAERS Safety Report 18703654 (Version 1)
Quarter: 2021Q1

REPORT INFORMATION
  Report Type: Spontaneous
  Country: CN (occurrence: CN)
  Receive Date: 20210105
  Receipt Date: 20210105
  Transmission Date: 20210419
  Serious: Yes (Hospitalization, Other)
  Sender: FDA-Public Use
  Company Number: CN-BAYER-2020-286923

PATIENT
  Age: 71 Year
  Sex: Female
  Weight: 75 kg

DRUGS (1)
  1. STIVARGA [Suspect]
     Active Substance: REGORAFENIB
     Indication: HEPATIC CANCER
     Dosage: 160 MG, QD
     Route: 048
     Dates: start: 20201209, end: 20201209

REACTIONS (10)
  - Toxic encephalopathy [None]
  - Oedema peripheral [None]
  - Slow response to stimuli [Recovering/Resolving]
  - Aphasia [Recovering/Resolving]
  - Tongue movement disturbance [Recovering/Resolving]
  - Decreased appetite [None]
  - Listless [Recovering/Resolving]
  - Altered state of consciousness [Recovering/Resolving]
  - Poor quality sleep [Recovered/Resolved]
  - Confusional state [Recovering/Resolving]

NARRATIVE: CASE EVENT DATE: 20201209
